FAERS Safety Report 18573037 (Version 1)
Quarter: 2020Q4

REPORT INFORMATION
  Report Type: Spontaneous
  Country: US (occurrence: US)
  Receive Date: 20201203
  Receipt Date: 20201203
  Transmission Date: 20210114
  Serious: No
  Sender: FDA-Public Use
  Company Number: US-ALLERGAN-2002509US

PATIENT
  Age: 76 Year
  Sex: Female

DRUGS (1)
  1. DALVANCE [Suspect]
     Active Substance: DALBAVANCIN
     Indication: MASTITIS
     Dosage: 1500 MG, SINGLE
     Route: 042
     Dates: start: 20200117, end: 20200117

REACTIONS (7)
  - Chills [Not Recovered/Not Resolved]
  - Vomiting [Unknown]
  - Tachycardia [Unknown]
  - Pain in extremity [Unknown]
  - Hypotension [Unknown]
  - Back pain [Unknown]
  - Nausea [Unknown]

NARRATIVE: CASE EVENT DATE: 20200117
